FAERS Safety Report 19432243 (Version 1)
Quarter: 2021Q2

REPORT INFORMATION
  Report Type: Spontaneous
  Country: NL (occurrence: NL)
  Receive Date: 20210618
  Receipt Date: 20210618
  Transmission Date: 20210717
  Serious: Yes (Other)
  Sender: FDA-Public Use
  Company Number: NL-SUN PHARMACEUTICAL INDUSTRIES LTD-2021RR-301225

PATIENT
  Sex: Female
  Weight: 52.5 kg

DRUGS (10)
  1. TEMAZEPAM TABLET 10MG / BRAND NAME NOT SPECIFIEDTEMAZEPAM TABLET 10MG [Concomitant]
     Indication: PRODUCT USED FOR UNKNOWN INDICATION
     Dosage: TABLET, 10 MG (MILLIGRAM) ()
     Route: 065
  2. FOSFOMYCINE POEDER V DRANK 3G / BRAND NAME NOT SPECIFIEDFOSFOMYCINE... [Concomitant]
     Indication: PRODUCT USED FOR UNKNOWN INDICATION
     Dosage: POWDER FOR BEVERAGE, 3 G (GRAMS) ()
     Route: 065
  3. MACROGOL/ZOUTEN PDR V DRANK (MOVIC/MOLAX/LAXT/GEN) / BRAND NAME NOT... [Concomitant]
     Indication: PRODUCT USED FOR UNKNOWN INDICATION
     Dosage: POWDER FOR BEVERAGE ()
     Route: 065
  4. OMEPRAZOL CAPSULE MSR 20MG / BRAND NAME NOT SPECIFIEDOMEPRAZOL CAPS... [Concomitant]
     Active Substance: OMEPRAZOLE
     Indication: PRODUCT USED FOR UNKNOWN INDICATION
     Dosage: MAAGSAPRESISTENTE CAPSULE, 20 MG (MILLIGRAM) ()
     Route: 065
  5. DENOSUMAB INJVLST 70MG/ML / BRAND NAME NOT SPECIFIEDDENOSUMAB INJVL... [Concomitant]
     Indication: PRODUCT USED FOR UNKNOWN INDICATION
     Dosage: INJECTIEVLOEISTOF, 70 MG/ML (MILLIGRAM PER MILLILITER) ()
     Route: 065
  6. PREGABALIN. [Suspect]
     Active Substance: PREGABALIN
     Indication: NEURALGIA
     Dosage: 3 X PER DAG 2 STUKS.
     Route: 065
     Dates: start: 20210429
  7. CALCIUMCARB/COLECALC KAUWTB 1,25G/800IE (500MG CA) / CALCI CHEW D3 ... [Concomitant]
     Indication: PRODUCT USED FOR UNKNOWN INDICATION
     Dosage: CHEWABLE TABLET, 1,25 G (GRAMS)/800 UNITS ()
     Route: 065
  8. TIOTROPIUM/OLODATEROL VERNEVELVLST 2,5/2,5UG/DO / SPIOLTO RESPIMAT ... [Concomitant]
     Indication: PRODUCT USED FOR UNKNOWN INDICATION
     Dosage: NEBULIZER, 2.5/2.5 UG/DOSE (MICROGRAMS PER DOSE) ()
     Route: 065
  9. FENTANYL PLEISTER  12UG/UUR (GENERIEK+DUROGESIC) / BRAND NAME NOT S... [Concomitant]
     Indication: PRODUCT USED FOR UNKNOWN INDICATION
     Dosage: PATCH, 12 UG (MICROGRAMS) PER HOUR ()
     Route: 065
  10. LEVOTHYROXINE CAPSULE  75UG / BRAND NAME NOT SPECIFIEDLEVOTHYROXINE... [Concomitant]
     Indication: PRODUCT USED FOR UNKNOWN INDICATION
     Dosage: CAPSULE, 75 UG (MICROGRAM) ()
     Route: 065

REACTIONS (3)
  - Hallucination [Recovering/Resolving]
  - Confusional state [Recovering/Resolving]
  - Nausea [Recovering/Resolving]
